FAERS Safety Report 16335862 (Version 1)
Quarter: 2019Q2

REPORT INFORMATION
  Report Type: Spontaneous
  Country: IT (occurrence: IT)
  Receive Date: 20190521
  Receipt Date: 20190521
  Transmission Date: 20190711
  Serious: Yes (Other)
  Sender: FDA-Public Use
  Company Number: IT-ACCORD-128564

PATIENT
  Age: 47 Year

DRUGS (3)
  1. QUETIAPINE ACCORD [Suspect]
     Active Substance: QUETIAPINE
     Indication: INTELLECTUAL DISABILITY
     Dosage: STRENGTH : 300 MG
     Route: 048
     Dates: start: 20180915, end: 20181012
  2. DEPAKIN [Concomitant]
     Active Substance: VALPROATE SODIUM
  3. DELORAZEPAM [Concomitant]
     Active Substance: DELORAZEPAM

REACTIONS (3)
  - Insomnia [Recovered/Resolved]
  - Narcolepsy [Recovered/Resolved]
  - Sedation [Recovered/Resolved]

NARRATIVE: CASE EVENT DATE: 20180915
